FAERS Safety Report 8869646 (Version 1)
Quarter: 2012Q4

REPORT INFORMATION
  Report Type: 
  Country: US (occurrence: US)
  Receive Date: 20121026
  Receipt Date: 20121026
  Transmission Date: 20130627
  Serious: No
  Sender: FDA-Public Use
  Company Number: US-AMGEN-USASP2012042940

PATIENT
  Age: 54 Year
  Sex: Female
  Weight: 97 kg

DRUGS (12)
  1. ENBREL [Suspect]
     Indication: PRODUCT USED FOR UNKNOWN INDICATION
     Dosage: 50 mg, qwk
     Route: 058
  2. METHOTREXATE [Concomitant]
     Dosage: 2.5 mg, UNK
  3. SYNTHROID [Concomitant]
     Dosage: 100 MCG
  4. PROVENTIL                          /00139501/ [Concomitant]
     Dosage: 90 mcg
  5. LANTUS [Concomitant]
     Dosage: 100/ml
  6. MOEXIPRIL [Concomitant]
     Dosage: 7.5 mg, UNK
  7. METFORMIN [Concomitant]
     Dosage: 750 mg, UNK
  8. ADVAIR [Concomitant]
     Dosage: 500/50
  9. NEXIUM                             /01479302/ [Concomitant]
     Dosage: 20 mg, UNK
  10. HYDROCHLOROTH [Concomitant]
     Dosage: 12.5 mg, UNK
  11. ZAFIRLUKAST [Concomitant]
     Dosage: 20 mg, UNK
  12. FOLIC ACID [Concomitant]
     Dosage: 20 mg, UNK

REACTIONS (1)
  - Sinusitis [Recovered/Resolved]
